FAERS Safety Report 9002649 (Version 1)
Quarter: 2012Q4

REPORT INFORMATION
  Report Type: Spontaneous
  Country: SE (occurrence: None)
  Receive Date: 20121226
  Receipt Date: 20121226
  Transmission Date: 20130627
  Serious: Yes (Hospitalization, Other)
  Sender: FDA-Public Use
  Company Number: 2009EU002845

PATIENT
  Age: 61 Year
  Sex: Male
  Weight: 90 kg

DRUGS (29)
  1. TACROLIMUS SYSTEMIC (TACROLIMUS) [Suspect]
     Indication: PROPHYLAXIS AGAINST RENAL TRANSPLANT REJECTION
     Route: 048
     Dates: start: 20030430
  2. TACROLIMUS SYSTEMIC (TACROLIMUS) [Suspect]
     Indication: PROPHYLAXIS AGAINST RENAL TRANSPLANT REJECTION
     Route: 048
     Dates: start: 20030502
  3. TACROLIMUS SYSTEMIC (TACROLIMUS) [Suspect]
     Indication: PROPHYLAXIS AGAINST RENAL TRANSPLANT REJECTION
     Route: 048
     Dates: start: 20030910
  4. TACROLIMUS SYSTEMIC (TACROLIMUS) [Suspect]
     Indication: PROPHYLAXIS AGAINST RENAL TRANSPLANT REJECTION
     Route: 048
     Dates: start: 20040421
  5. DACLIZUMAB [Suspect]
     Indication: PROPHYLAXIS AGAINST RENAL TRANSPLANT REJECTION
     Dosage: UID
     Route: 042
     Dates: start: 20030429, end: 20030429
  6. DACLIZUMAB [Suspect]
     Indication: PROPHYLAXIS AGAINST RENAL TRANSPLANT REJECTION
     Dosage: other
     Route: 042
     Dates: start: 20120513, end: 20030621
  7. MYCOPHENOLATE MOFETIL (MYCOPHENOLATE MOFETIL) [Suspect]
     Indication: RENAL TRANSPLANT
     Dosage: UID
     Route: 048
     Dates: start: 20030429
  8. MYCOPHENOLATE MOFETIL (MYCOPHENOLATE MOFETIL) [Suspect]
     Indication: RENAL TRANSPLANT
     Route: 048
     Dates: start: 20030830
  9. MYCOPHENOLATE MOFETIL (MYCOPHENOLATE MOFETIL) [Suspect]
     Indication: RENAL TRANSPLANT
  10. MYCOPHENOLATE MOFETIL (MYCOPHENOLATE MOFETIL) [Suspect]
     Indication: PROPHYLAXIS AGAINST RENAL TRANSPLANT REJECTION
     Route: 048
     Dates: start: 20030910
  11. MYCOPHENOLATE MOFETIL (MYCOPHENOLATE MOFETIL) [Suspect]
     Indication: PROPHYLAXIS AGAINST RENAL TRANSPLANT REJECTION
     Route: 048
     Dates: start: 20040107
  12. PREDNISOLONE (PREDNISOLONE) [Suspect]
     Indication: PROPHYLAXIS AGAINST RENAL TRANSPLANT REJECTION
     Dosage: UID
     Route: 042
     Dates: start: 20030429, end: 20030429
  13. PREDNISOLONE (PREDNISOLONE) [Suspect]
     Indication: PROPHYLAXIS AGAINST RENAL TRANSPLANT REJECTION
  14. PREDNISOLON /00016201/ [Suspect]
     Indication: PROPHYLAXIS AGAINST RENAL TRANSPLANT REJECTION
     Route: 048
     Dates: start: 20030430
  15. PREDNISOLON /00016201/ [Suspect]
     Indication: PROPHYLAXIS AGAINST RENAL TRANSPLANT REJECTION
     Dosage: UID
     Route: 048
     Dates: start: 20040722
  16. PREDNISOLON /00016201/ [Suspect]
     Indication: PROPHYLAXIS AGAINST RENAL TRANSPLANT REJECTION
     Route: 048
     Dates: start: 20040902, end: 20041201
  17. BUMETANIDE (BUMETANIDE) [Concomitant]
  18. DOXAZOSIN (DOXAZOSIN MESILATE) [Concomitant]
  19. FELODIPIN (FELODIPINE) [Concomitant]
  20. FRUSEMID (FUROSEMIDE) [Concomitant]
  21. METOPROLOL (METOPROLOL TARTRATE) [Concomitant]
  22. CEFADROXIL (CEFADROXIL) [Concomitant]
  23. FLUCLOXACILLIN (FLUCLOXACILLIN) [Concomitant]
  24. GANCICLOVIR (GANCICLOVIR) [Concomitant]
  25. METRONIDAZOL (METRONIDAZOLE) [Concomitant]
  26. NORFLOXACIN (NORFLOXACIN) [Concomitant]
  27. PENTAMIDINE (PENTAMIDINE) [Concomitant]
  28. POTASSIUM CHLORIDE (POTASSIUM CHLORIDE) [Concomitant]
  29. ASPIRIN (ACETYLSALICYLIC ACID) [Concomitant]

REACTIONS (10)
  - Large intestine perforation [None]
  - Venous stenosis [None]
  - Colitis [None]
  - Hyperparathyroidism [None]
  - Post procedural haemorrhage [None]
  - Haemoglobin decreased [None]
  - Hypotension [None]
  - Peritonitis [None]
  - Oedema peripheral [None]
  - Pain in extremity [None]
